FAERS Safety Report 8583365-9 (Version None)
Quarter: 2012Q3

REPORT INFORMATION
  Report Type: 
  Country: None (occurrence: None)
  Receive Date: 20120809
  Receipt Date: 20120727
  Transmission Date: 20120928
  Serious: Yes (Hospitalization)
  Sender: FDA-Public Use
  Company Number: GB-ROCHE-1087799

PATIENT
  Sex: Female
  Weight: 104.7 kg

DRUGS (5)
  1. HERCEPTIN [Suspect]
     Indication: BREAST CANCER
     Route: 042
     Dates: start: 20120622
  2. PLACEBO [Suspect]
     Indication: BREAST CANCER
     Dosage: DATE OF LAST DOSE PRIOR TO SAE: 22/JUN/2012, 52 WEEKS
     Route: 042
     Dates: start: 20120622
  3. LEVOTHYROXINE SODIUM [Concomitant]
  4. LANSOPRAZOLE [Concomitant]
  5. DOCETAXEL [Suspect]
     Indication: BREAST CANCER
     Dosage: DATE OF LAST DOSE PRIOR TO SAE: 22/JUN/2012
     Route: 042
     Dates: start: 20120622

REACTIONS (2)
  - PYREXIA [None]
  - ORAL PAIN [None]
